FAERS Safety Report 17373376 (Version 4)
Quarter: 2020Q2

REPORT INFORMATION
  Report Type: Report from Study
  Country: BR (occurrence: BR)
  Receive Date: 20200205
  Receipt Date: 20200619
  Transmission Date: 20200713
  Serious: Yes (Other)
  Sender: FDA-Public Use
  Company Number: NVSC2019BR017671

PATIENT
  Age: 73 Year
  Sex: Female
  Weight: 68 kg

DRUGS (16)
  1. TAFINLAR [Suspect]
     Active Substance: DABRAFENIB MESYLATE
     Dosage: UNK (AROUND 28 OCT 2019)
     Route: 065
  2. DESLORATADIN [Suspect]
     Active Substance: DESLORATADINE
     Indication: PRODUCT USED FOR UNKNOWN INDICATION
     Dosage: UNK
     Route: 065
  3. MEKINIST [Suspect]
     Active Substance: TRAMETINIB DIMETHYL SULFOXIDE
     Dosage: 2 MG, QD
     Route: 048
     Dates: start: 201910, end: 202001
  4. TAFINLAR [Suspect]
     Active Substance: DABRAFENIB MESYLATE
     Dosage: UNK
     Route: 065
  5. MEKINIST [Suspect]
     Active Substance: TRAMETINIB DIMETHYL SULFOXIDE
     Dosage: 2 MG, QD
     Route: 048
     Dates: start: 20200604
  6. TAFINLAR [Suspect]
     Active Substance: DABRAFENIB MESYLATE
     Dosage: 75 MG, Q12H
     Route: 048
     Dates: start: 201910, end: 202001
  7. LOSARTAN. [Concomitant]
     Active Substance: LOSARTAN
     Indication: HYPERTENSION
     Dosage: 0.5 MG, QD
     Route: 048
  8. MEKINIST [Suspect]
     Active Substance: TRAMETINIB DIMETHYL SULFOXIDE
     Indication: NEOPLASM MALIGNANT
     Dosage: 2 MG, QD (MORNING)
     Route: 048
     Dates: start: 20191019
  9. MEKINIST [Suspect]
     Active Substance: TRAMETINIB DIMETHYL SULFOXIDE
     Dosage: UNK (AROUND 28 OCT 2019)
     Route: 065
  10. TAFINLAR [Suspect]
     Active Substance: DABRAFENIB MESYLATE
     Dosage: 75 MG, Q12H
     Route: 048
     Dates: start: 20200604
  11. TAFINLAR [Suspect]
     Active Substance: DABRAFENIB MESYLATE
     Indication: NEOPLASM MALIGNANT
     Dosage: 150 MG (12/1/2 HOURS )
     Route: 065
     Dates: start: 20191019
  12. RIVOTRIL [Concomitant]
     Active Substance: CLONAZEPAM
     Indication: SLEEP DISORDER
     Dosage: 0.5 MG (USES ONLY WHEN SHE NEEDS TO SLEEP) (FROM MORE THAN 5 YEARS)
     Route: 048
  13. NIVOLUMAB [Concomitant]
     Active Substance: NIVOLUMAB
     Indication: NEOPLASM MALIGNANT
     Dosage: UNK
     Route: 065
     Dates: start: 202001, end: 202002
  14. RIVOTRIL [Concomitant]
     Active Substance: CLONAZEPAM
     Indication: ANXIETY
  15. RIVOTRIL [Concomitant]
     Active Substance: CLONAZEPAM
     Indication: STRESS
  16. IPILIMUMAB [Concomitant]
     Active Substance: IPILIMUMAB
     Indication: NEOPLASM MALIGNANT
     Dosage: UNK
     Route: 065
     Dates: start: 202001, end: 202002

REACTIONS (21)
  - Malignant neoplasm progression [Not Recovered/Not Resolved]
  - Urinary tract infection [Recovered/Resolved]
  - Erythema [Recovered/Resolved]
  - Decreased appetite [Not Recovered/Not Resolved]
  - Neoplasm malignant [Not Recovered/Not Resolved]
  - Pigmentation disorder [Recovering/Resolving]
  - Sluggishness [Not Recovered/Not Resolved]
  - White blood cell count decreased [Recovered/Resolved]
  - Recurrent cancer [Not Recovered/Not Resolved]
  - Pyrexia [Recovered/Resolved]
  - Pruritus [Recovered/Resolved]
  - Malaise [Not Recovered/Not Resolved]
  - Joint swelling [Unknown]
  - Malaise [Recovered/Resolved]
  - Malaise [Recovered/Resolved]
  - Back pain [Unknown]
  - Oxygen consumption decreased [Recovered/Resolved]
  - Hypotension [Recovered/Resolved]
  - Drug hypersensitivity [Recovered/Resolved]
  - Nervousness [Unknown]
  - Pain [Recovered/Resolved]

NARRATIVE: CASE EVENT DATE: 201910
